FAERS Safety Report 8289473-4 (Version None)
Quarter: 2012Q2

REPORT INFORMATION
  Report Type: 
  Country: None (occurrence: None)
  Receive Date: 20120417
  Receipt Date: 20120410
  Transmission Date: 20120825
  Serious: Yes (Hospitalization)
  Sender: FDA-Public Use
  Company Number: FR-AMGEN-FRASP2012022382

PATIENT
  Age: 60 Year
  Sex: Male

DRUGS (8)
  1. CYTARABINE [Concomitant]
     Dosage: 3500 MG, UNK
     Route: 042
     Dates: start: 20120204, end: 20120204
  2. ONDANSETRON [Concomitant]
     Dosage: 8 MG, UNK
     Route: 042
     Dates: start: 20120203
  3. NEULASTA [Suspect]
     Indication: CHEMOTHERAPY
     Dosage: 6 MG, UNK
     Route: 058
     Dates: start: 20120206
  4. EMEND [Concomitant]
     Dosage: 125 MG, UNK
     Route: 048
     Dates: start: 20120203, end: 20120203
  5. CYTARABINE [Concomitant]
     Dosage: 3500 MG, UNK
     Dates: start: 20120229, end: 20120229
  6. DEXAMETHASONE [Concomitant]
     Dosage: 40 MG, UNK
     Route: 042
     Dates: start: 20120203
  7. CISPLATIN [Concomitant]
     Dosage: 175 MG, UNK
     Route: 042
     Dates: start: 20120203, end: 20120203
  8. CISPLATIN [Concomitant]
     Dosage: 175 MG, UNK
     Dates: start: 20120229, end: 20120229

REACTIONS (1)
  - LEUKOCYTOCLASTIC VASCULITIS [None]
